FAERS Safety Report 6696946-4 (Version None)
Quarter: 2010Q2

REPORT INFORMATION
  Report Type: 
  Country: None (occurrence: None)
  Receive Date: 20100421
  Receipt Date: 20100408
  Transmission Date: 20101027
  Serious: Yes (Hospitalization)
  Sender: FDA-Public Use
  Company Number: VAL_00400_2010

PATIENT
  Age: 62 Year
  Sex: Female
  Weight: 45 kg

DRUGS (3)
  1. ROCALTROL [Suspect]
     Indication: OSTEOPOROSIS
     Dosage: (0.25 ?G QD ORAL), (25 ?G QD ORAL)
     Route: 048
     Dates: start: 20071201, end: 20090701
  2. ROCALTROL [Suspect]
     Indication: OSTEOPOROSIS
     Dosage: (0.25 ?G QD ORAL), (25 ?G QD ORAL)
     Route: 048
     Dates: start: 20100301
  3. CALCIUM MAGNESIUM [Concomitant]

REACTIONS (1)
  - PATELLA FRACTURE [None]
